FAERS Safety Report 21648381 (Version 2)
Quarter: 2022Q4

REPORT INFORMATION
  Report Type: Spontaneous
  Country: US (occurrence: US)
  Receive Date: 20221128
  Receipt Date: 20221226
  Transmission Date: 20230112
  Serious: No
  Sender: FDA-Public Use
  Company Number: US-ORGANON-O2211USA002132

PATIENT
  Age: 21 Year
  Sex: Female
  Weight: 56.689 kg

DRUGS (2)
  1. NEXPLANON [Suspect]
     Active Substance: ETONOGESTREL
     Dosage: 1 IMPLANT OF 68 MG ONCE, RIGHT ARM
     Route: 059
     Dates: start: 20221121, end: 20221121
  2. NEXPLANON [Concomitant]
     Active Substance: ETONOGESTREL
     Dosage: 1 IMPLANT OF 68 MG
     Route: 059
     Dates: start: 201911, end: 20221121

REACTIONS (4)
  - Complication of device insertion [Recovered/Resolved]
  - Device difficult to use [Recovered/Resolved]
  - Product quality issue [Unknown]
  - No adverse event [Unknown]

NARRATIVE: CASE EVENT DATE: 20221121
